FAERS Safety Report 7136451-4 (Version None)
Quarter: 2010Q4

REPORT INFORMATION
  Report Type: 
  Country: None (occurrence: None)
  Receive Date: 20101206
  Receipt Date: 20041021
  Transmission Date: 20110411
  Serious: Yes (Death)
  Sender: FDA-Public Use
  Company Number: FR-ACTELION-A-CH2004-07847

PATIENT
  Sex: Female

DRUGS (10)
  1. BOSENTAN TABLET 125 MG EU [Suspect]
     Indication: PULMONARY HYPERTENSION
     Dosage: 125 MG, BID
     Route: 048
     Dates: start: 20020626, end: 20041001
  2. BOSENTAN TABLET 125 MG EU [Suspect]
     Dosage: 62.5 MG, BID
     Route: 048
     Dates: start: 20000925, end: 20001022
  3. BOSENTAN TABLET 125 MG EU [Suspect]
     Dosage: 125 MG, BID
     Route: 048
     Dates: start: 20001023, end: 20010322
  4. BOSENTAN TABLET 125 MG EU [Suspect]
     Dosage: 62.5 MG, BID
     Route: 048
     Dates: start: 20010323, end: 20010425
  5. BOSENTAN TABLET 125 MG EU [Suspect]
     Dosage: 125 MG, BID
     Route: 048
     Dates: start: 20010426, end: 20020123
  6. BOSENTAN TABLET 125 MG EU [Suspect]
     Dosage: 250 MG, BID
     Route: 048
     Dates: start: 20020124, end: 20020625
  7. FLOLAN [Concomitant]
  8. PREVISCAN [Concomitant]
  9. OXYGEN [Concomitant]
  10. DIURETICS [Concomitant]

REACTIONS (1)
  - DEATH [None]
